FAERS Safety Report 10189430 (Version 2)
Quarter: 2014Q2

REPORT INFORMATION
  Report Type: Spontaneous
  Country: US (occurrence: US)
  Receive Date: 20140522
  Receipt Date: 20140522
  Transmission Date: 20141212
  Serious: No
  Sender: FDA-Public Use
  Company Number: US-ASTRAZENECA-2013SE56225

PATIENT
  Age: 58 Year
  Sex: Female
  Weight: 80.7 kg

DRUGS (8)
  1. PULMICORT [Suspect]
     Indication: ASTHMA
     Route: 055
  2. PULMICORT [Suspect]
     Indication: ASTHMA
     Route: 055
  3. RHINOCORT AQUA [Suspect]
     Indication: MULTIPLE ALLERGIES
     Dosage: DAILY
     Route: 045
  4. ZERTEC [Concomitant]
     Dosage: HS
  5. MIRALAX [Concomitant]
     Dosage: DAILY
  6. CALCIUM [Concomitant]
  7. FISH OIL [Concomitant]
  8. ALBUTEROL [Concomitant]
     Dosage: PRN

REACTIONS (2)
  - Headache [Recovered/Resolved]
  - Chest pain [Recovered/Resolved]
